FAERS Safety Report 17830386 (Version 3)
Quarter: 2025Q4

REPORT INFORMATION
  Report Type: Spontaneous
  Country: JP (occurrence: JP)
  Receive Date: 20200527
  Receipt Date: 20251106
  Transmission Date: 20260117
  Serious: Yes (Other)
  Sender: BAYER HEALTHCARE PHARMACEUTICALS INC.
  Company Number: JP-BAYER-2020-095992

PATIENT
  Age: 71 Year
  Sex: Male
  Weight: 59.8 kg

DRUGS (7)
  1. STIVARGA [Suspect]
     Active Substance: REGORAFENIB MONOHYDRATE
     Indication: Colon cancer
     Dosage: 80MG/DAY , 3 CONSECUTIVE WEEKS ADMINISTRATION 1 WEEK OFF
     Route: 048
     Dates: start: 20191011, end: 20191107
  2. STIVARGA [Suspect]
     Active Substance: REGORAFENIB MONOHYDRATE
     Indication: Colon cancer
     Dosage: 120MG/DAY , 3 CONSECUTIVE WEEKS ADMINISTRATION 1 WEEK OFF
     Route: 048
     Dates: start: 20191108, end: 20200515
  3. BARACLUDE [Concomitant]
     Active Substance: ENTECAVIR
     Dosage: 0.5MG/DAY
     Route: 048
     Dates: start: 201610
  4. CAMOSTAT MESYLATE [Concomitant]
     Active Substance: CAMOSTAT MESYLATE
     Dosage: 600MG/DAY
     Route: 048
     Dates: start: 20170831
  5. ESOMEPRAZOLE [Concomitant]
     Active Substance: ESOMEPRAZOLE
     Dosage: 20MG/DAY
     Route: 048
     Dates: start: 20180404
  6. GLYCOSAMINOGLYCANS [Concomitant]
     Active Substance: GLYCOSAMINOGLYCANS
     Indication: Drug toxicity prophylaxis
     Dosage: APPROPRIATE AMOUNT
     Route: 061
     Dates: start: 20191011
  7. MAHADY [Concomitant]
     Indication: Drug toxicity prophylaxis
     Dosage: APPROPRIATE AMOUNT
     Route: 061
     Dates: start: 20191011

REACTIONS (5)
  - Lip squamous cell carcinoma [Not Recovered/Not Resolved]
  - Keratoacanthoma [Not Recovered/Not Resolved]
  - Stomatitis [Recovered/Resolved]
  - Cheilitis [Recovering/Resolving]
  - Off label use [None]

NARRATIVE: CASE EVENT DATE: 20191011
